FAERS Safety Report 7283354-0 (Version None)
Quarter: 2011Q1

REPORT INFORMATION
  Report Type: 
  Country: None (occurrence: None)
  Receive Date: 20110209
  Receipt Date: 20110207
  Transmission Date: 20110831
  Serious: Yes (Death)
  Sender: FDA-Public Use
  Company Number: US-B.I. PHARMACEUTICALS,INC./RIDGEFIELD-2011-BP-01123BP

PATIENT
  Age: 63 Year
  Sex: Male

DRUGS (4)
  1. HYDRALAZINE HCL [Concomitant]
     Indication: HYPERTENSION
  2. DILAUDID [Concomitant]
     Indication: SICKLE CELL ANAEMIA
  3. PRADAXA [Suspect]
     Indication: ATRIAL FIBRILLATION
     Dosage: 300 MG
     Route: 048
     Dates: start: 20110109
  4. PRIMICIDE [Concomitant]
     Indication: GOUT

REACTIONS (2)
  - DEATH [None]
  - DYSPEPSIA [None]
